FAERS Safety Report 18685695 (Version 1)
Quarter: 2020Q4

REPORT INFORMATION
  Report Type: Spontaneous
  Country: US (occurrence: US)
  Receive Date: 20201231
  Receipt Date: 20201231
  Transmission Date: 20210114
  Serious: No
  Sender: FDA-Public Use
  Company Number: US-AUROBINDO-AUR-APL-2020-052026

PATIENT
  Sex: Male

DRUGS (1)
  1. PARACETAMOL TABLET 500MG [Suspect]
     Active Substance: ACETAMINOPHEN
     Indication: ABDOMINAL PAIN UPPER
     Dosage: 3 DOSAGE FORM (TAKEN 03 TABLETS SINCE SUNDAY)
     Route: 065

REACTIONS (1)
  - Constipation [Unknown]
